FAERS Safety Report 23206546 (Version 1)
Quarter: 2023Q4

REPORT INFORMATION
  Report Type: Spontaneous
  Country: NO (occurrence: NO)
  Receive Date: 20231120
  Receipt Date: 20231120
  Transmission Date: 20240110
  Serious: Yes (Other)
  Sender: FDA-Public Use
  Company Number: None

PATIENT
  Sex: Female
  Weight: 60 kg

DRUGS (1)
  1. TAMOXIFEN [Suspect]
     Active Substance: TAMOXIFEN
     Indication: Breast cancer recurrent
     Dosage: 1 DOSAGE FORM, QD DISCONTINUED USE 11/JUL/2022, STARTED USING TAMIXIFEN AGAIN ON 05/SEP/2022.
     Route: 065
     Dates: start: 201906, end: 20221206

REACTIONS (9)
  - Cataract [Not Recovered/Not Resolved]
  - Heart rate irregular [Recovered/Resolved]
  - Weight decreased [Recovered/Resolved]
  - Osteoporosis [Unknown]
  - Visual impairment [Not Recovered/Not Resolved]
  - Polyuria [Recovered/Resolved]
  - Fatigue [Unknown]
  - Constipation [Recovered/Resolved]
  - Nausea [Recovering/Resolving]

NARRATIVE: CASE EVENT DATE: 20190601
